FAERS Safety Report 7069597-X (Version None)
Quarter: 2010Q4

REPORT INFORMATION
  Report Type: 
  Country: None (occurrence: None)
  Receive Date: 20101028
  Receipt Date: 20100329
  Transmission Date: 20110411
  Serious: No
  Sender: FDA-Public Use
  Company Number: US-WYE-H14377010

PATIENT
  Sex: Male
  Weight: 95.34 kg

DRUGS (2)
  1. EFFEXOR [Suspect]
     Indication: DEPRESSION
     Dosage: ^THERAPEUTIC DOSE^
     Dates: start: 20080101
  2. EFFEXOR [Suspect]
     Dosage: INCREASED HIS DOSE
     Dates: end: 20090901

REACTIONS (2)
  - DRUG INEFFECTIVE [None]
  - NONSPECIFIC REACTION [None]
